FAERS Safety Report 25889474 (Version 4)
Quarter: 2025Q4

REPORT INFORMATION
  Report Type: Report from Study
  Country: US (occurrence: US)
  Receive Date: 20251007
  Receipt Date: 20251117
  Transmission Date: 20260118
  Serious: No
  Sender: DECIPHERA PHARMACEUTICALS
  Company Number: US-DECIPHERA PHARMACEUTICALS LLC-2025US001175

PATIENT
  Age: 81 Year
  Sex: Female

DRUGS (3)
  1. ROMVIMZA [Suspect]
     Active Substance: VIMSELTINIB
     Indication: Giant cell tumour of tendon sheath
     Dosage: 30 MILLIGRAM, TWICE WEEKLY (Q 72, ON SUNDAY AND WEDNESDAY)
     Dates: start: 20250723, end: 2025
  2. ROMVIMZA [Suspect]
     Active Substance: VIMSELTINIB
     Indication: Hyperplasia
     Dosage: 20 MILLIGRAM, Q72
  3. ROMVIMZA [Suspect]
     Active Substance: VIMSELTINIB
     Dosage: UNK

REACTIONS (5)
  - Medication overuse headache [Unknown]
  - Swelling face [Unknown]
  - Periorbital swelling [Unknown]
  - Hypertension [Recovering/Resolving]
  - Joint swelling [Unknown]

NARRATIVE: CASE EVENT DATE: 20250101
